FAERS Safety Report 16242407 (Version 1)
Quarter: 2019Q2

REPORT INFORMATION
  Report Type: Spontaneous
  Country: US (occurrence: US)
  Receive Date: 20190426
  Receipt Date: 20190426
  Transmission Date: 20190711
  Serious: Yes (Hospitalization, Other)
  Sender: FDA-Public Use
  Company Number: US-AMGEN-USASP2019062853

PATIENT
  Age: 75 Year
  Sex: Male

DRUGS (3)
  1. EPOETIN ALFA [Suspect]
     Active Substance: ERYTHROPOIETIN
     Dosage: 40000 UNIT, QWK
     Route: 065
  2. FERUMOXYTOL [Concomitant]
     Active Substance: FERUMOXYTOL NON-STOICHIOMETRIC MAGNETITE
     Indication: HAEMOGLOBIN DECREASED
     Dosage: 510 MILLIGRAM, ONE TIME DOSE
     Route: 042
  3. EPOETIN ALFA [Suspect]
     Active Substance: ERYTHROPOIETIN
     Indication: HAEMOGLOBIN ABNORMAL
     Dosage: 40000 UNIT, Q6WK
     Route: 065

REACTIONS (6)
  - Hypotension [Recovered/Resolved]
  - Bradycardia [Recovered/Resolved]
  - Coagulopathy [Recovered/Resolved]
  - Right ventricular dysfunction [Recovered/Resolved]
  - Haemoglobin decreased [Recovered/Resolved]
  - Off label use [Unknown]
